FAERS Safety Report 11630400 (Version 2)
Quarter: 2015Q4

REPORT INFORMATION
  Report Type: Spontaneous
  Country: US (occurrence: US)
  Receive Date: 20151014
  Receipt Date: 20151110
  Transmission Date: 20160304
  Serious: No
  Sender: FDA-Public Use
  Company Number: US-PFIZER INC-2015330751

PATIENT
  Sex: Female

DRUGS (4)
  1. ESTRADIOL. [Suspect]
     Active Substance: ESTRADIOL
     Dosage: 3 WEEKS ON AND 1 WEEK OFF
  2. IBUPROFEN. [Suspect]
     Active Substance: IBUPROFEN
     Indication: PAIN
     Dosage: UNK
  3. TYLENOL [Suspect]
     Active Substance: ACETAMINOPHEN
     Indication: PAIN
     Dosage: UNK
  4. NAPROXEN. [Suspect]
     Active Substance: NAPROXEN
     Indication: PAIN
     Dosage: 500 MG, 2X/DAY AS NEEDED
     Route: 048

REACTIONS (2)
  - Drug ineffective [Unknown]
  - Drug intolerance [Unknown]
